FAERS Safety Report 12232743 (Version 1)
Quarter: 2016Q2

REPORT INFORMATION
  Report Type: Other
  Country: CH (occurrence: CH)
  Receive Date: 20160402
  Receipt Date: 20160402
  Transmission Date: 20160815
  Serious: No
  Sender: FDA-Public Use
  Company Number: CH-LUPIN PHARMACEUTICALS INC.-2016-00035

PATIENT
  Age: 76 Year
  Sex: Male

DRUGS (2)
  1. AMOXICILLIN/CLAVULANIC ACID [Suspect]
     Active Substance: AMOXICILLIN\CLAVULANIC ACID
     Indication: CAMPYLOBACTER INFECTION
     Route: 065
  2. CLARITHROMYCIN. [Suspect]
     Active Substance: CLARITHROMYCIN
     Indication: CAMPYLOBACTER INFECTION
     Route: 065

REACTIONS (1)
  - Skin reaction [Unknown]
